FAERS Safety Report 6892629-6 (Version None)
Quarter: 2010Q3

REPORT INFORMATION
  Report Type: 
  Country: None (occurrence: None)
  Receive Date: 20100731
  Receipt Date: 20080729
  Transmission Date: 20110219
  Serious: No
  Sender: FDA-Public Use
  Company Number: US-PFIZER INC-2008062829

PATIENT
  Sex: Male
  Weight: 89.09 kg

DRUGS (10)
  1. CAVERJECT [Suspect]
     Indication: ERECTILE DYSFUNCTION
     Dates: start: 20070101
  2. PROGRAF [Concomitant]
  3. PREDNISONE [Concomitant]
  4. LEFLUNOMIDE [Concomitant]
  5. CARDIZEM [Concomitant]
  6. LABETALOL HCL [Concomitant]
  7. LISINOPRIL [Concomitant]
  8. SENSIPAR [Concomitant]
  9. MAGNESIUM OXIDE [Concomitant]
  10. STRESSTABS [Concomitant]

REACTIONS (2)
  - DRUG INEFFECTIVE [None]
  - PENILE PAIN [None]
